FAERS Safety Report 9882569 (Version 3)
Quarter: 2014Q2

REPORT INFORMATION
  Report Type: Spontaneous
  Country: NO (occurrence: NO)
  Receive Date: 20140207
  Receipt Date: 20140509
  Transmission Date: 20141212
  Serious: Yes (Other)
  Sender: FDA-Public Use
  Company Number: NO-WATSON-2014-01558

PATIENT
  Sex: Female

DRUGS (9)
  1. BUSPIRONE (UNKNOWN) [Suspect]
     Indication: DEPRESSION
     Dosage: 10 MG, TID
     Route: 065
     Dates: start: 201309, end: 20140122
  2. BUSPIRONE (UNKNOWN) [Suspect]
     Dosage: 10 MG, BID
     Dates: start: 201307
  3. BUSPIRONE (UNKNOWN) [Suspect]
     Dosage: 10MG AM AND LUNCH AND 20 MG IN THE EVENING
     Dates: start: 201309
  4. PREDNISOLONE [Concomitant]
     Indication: RHEUMATOID ARTHRITIS
     Dosage: 5 MG, DAILY
     Route: 065
  5. METHOTREXATE [Concomitant]
     Indication: RHEUMATOID ARTHRITIS
     Dosage: 17.5 MG, 1/WEEK
     Route: 065
  6. FOLSYRE NAF [Concomitant]
     Indication: RHEUMATOID ARTHRITIS
     Dosage: 1MG DAILY 5 DAYS PER WEEK
     Route: 065
  7. LISINOPRIL AND HYDROCHLOROTHIAZIDE [Concomitant]
     Indication: RHEUMATOID ARTHRITIS
     Dosage: 10/12.5 MG, DAILY
     Route: 065
  8. VALTREX [Concomitant]
     Indication: RHEUMATOID ARTHRITIS
     Dosage: 500 MG, DAILY
     Route: 065
  9. LIPITOR [Concomitant]
     Indication: RHEUMATOID ARTHRITIS
     Dosage: 40 MG, DAILY
     Route: 065

REACTIONS (5)
  - Drug ineffective [Recovered/Resolved]
  - Dissociation [Recovered/Resolved]
  - Discomfort [Recovered/Resolved]
  - Head discomfort [Recovered/Resolved]
  - Anxiety [Unknown]
